FAERS Safety Report 18666736 (Version 1)
Quarter: 2020Q4

REPORT INFORMATION
  Report Type: Spontaneous
  Country: AU (occurrence: AU)
  Receive Date: 20201227
  Receipt Date: 20201227
  Transmission Date: 20210114
  Serious: Yes (Hospitalization, Other)
  Sender: FDA-Public Use
  Company Number: AU-JNJFOC-20201234517

PATIENT
  Age: 36 Year
  Sex: Male

DRUGS (9)
  1. PARACETAMOL [Suspect]
     Active Substance: ACETAMINOPHEN
     Indication: HEADACHE
  2. PARACETAMOL [Suspect]
     Active Substance: ACETAMINOPHEN
     Indication: MYALGIA
  3. IBUPROFEN. [Suspect]
     Active Substance: IBUPROFEN
     Indication: MYALGIA
     Dosage: ADDITIONAL INFO: MEDICATION ERROR
     Route: 065
  4. PARACETAMOL [Suspect]
     Active Substance: ACETAMINOPHEN
     Indication: PYREXIA
     Dosage: ADDITIONAL INFO: MEDICATION ERROR
     Route: 065
  5. IBUPROFEN. [Suspect]
     Active Substance: IBUPROFEN
     Indication: HEADACHE
  6. CODEINE [Suspect]
     Active Substance: CODEINE
     Indication: HEADACHE
     Dosage: ADDITIONAL INFO: MEDICATION ERROR
     Route: 065
  7. CODEINE [Suspect]
     Active Substance: CODEINE
     Indication: MYALGIA
  8. IBUPROFEN. [Suspect]
     Active Substance: IBUPROFEN
     Indication: PYREXIA
  9. CODEINE [Suspect]
     Active Substance: CODEINE
     Indication: PYREXIA

REACTIONS (8)
  - Nail disorder [Not Recovered/Not Resolved]
  - Diarrhoea [Recovered/Resolved with Sequelae]
  - Nausea [Recovered/Resolved with Sequelae]
  - Pigmentation disorder [Recovered/Resolved with Sequelae]
  - Self-medication [Unknown]
  - Vomiting [Recovered/Resolved with Sequelae]
  - Respiratory failure [Recovering/Resolving]
  - SJS-TEN overlap [Recovered/Resolved with Sequelae]
